FAERS Safety Report 6062139-7 (Version None)
Quarter: 2009Q1

REPORT INFORMATION
  Report Type: 
  Country: None (occurrence: None)
  Receive Date: 20090130
  Receipt Date: 20090130
  Transmission Date: 20090719
  Serious: Yes (Hospitalization)
  Sender: FDA-Public Use
  Company Number: None

PATIENT
  Age: 95 Year
  Sex: Female
  Weight: 50 kg

DRUGS (11)
  1. COUMADIN [Suspect]
     Indication: PULMONARY EMBOLISM
     Dosage: 2.5-5 MG ONCE DAILY PO
     Route: 048
     Dates: start: 20061001, end: 20090115
  2. ABILIFY [Concomitant]
  3. FOSAMAX [Concomitant]
  4. AMOXICILLIN [Concomitant]
  5. CELEXA [Concomitant]
  6. GENTILE OPHTHALMIC GEL [Concomitant]
  7. MECLIZINE [Concomitant]
  8. MULTI-VITAMIN [Concomitant]
  9. SYNTHROID [Concomitant]
  10. VIACTIV [Concomitant]
  11. SUSTAIN OPHTHALMIC SOLUTION [Concomitant]

REACTIONS (2)
  - ECCHYMOSIS [None]
  - HAEMATOMA [None]
